FAERS Safety Report 8497870 (Version 3)
Quarter: 2012Q4

REPORT INFORMATION
  Report Type: 
  Country: BR (occurrence: BR)
  Receive Date: 20120406
  Receipt Date: 20120913
  Transmission Date: 20130627
  Serious: Yes (Death, Other)
  Sender: FDA-Public Use
  Company Number: BR-PFIZER INC-2012083709

PATIENT
  Age: 35 Year
  Sex: Male

DRUGS (1)
  1. CRIZOTINIB [Suspect]

REACTIONS (2)
  - Death [Fatal]
  - Respiratory failure [Unknown]
